FAERS Safety Report 13866863 (Version 2)
Quarter: 2017Q3

REPORT INFORMATION
  Report Type: Spontaneous
  Country: IT (occurrence: IT)
  Receive Date: 20170814
  Receipt Date: 20170816
  Transmission Date: 20171127
  Serious: Yes (Life-Threatening, Hospitalization)
  Sender: FDA-Public Use
  Company Number: IT-TEVA-797276ACC

PATIENT
  Age: 5 Year
  Sex: Male

DRUGS (7)
  1. CYTARABINE. [Suspect]
     Active Substance: CYTARABINE
     Indication: ACUTE LYMPHOCYTIC LEUKAEMIA
     Route: 037
  2. DEXAMETHASONE. [Concomitant]
     Active Substance: DEXAMETHASONE
     Indication: ACUTE LYMPHOCYTIC LEUKAEMIA
  3. METHOTREXATE. [Suspect]
     Active Substance: METHOTREXATE
     Indication: ACUTE LYMPHOCYTIC LEUKAEMIA
     Route: 037
  4. ALLOPURINOL. [Concomitant]
     Active Substance: ALLOPURINOL
  5. HYDROCORTISONE. [Suspect]
     Active Substance: HYDROCORTISONE
     Indication: ACUTE LYMPHOCYTIC LEUKAEMIA
     Route: 037
  6. LEVETIRACETAM. [Concomitant]
     Active Substance: LEVETIRACETAM
  7. ACETAZOLAMIDE. [Concomitant]
     Active Substance: ACETAZOLAMIDE

REACTIONS (4)
  - Cytokine release syndrome [Unknown]
  - Coma [Recovered/Resolved]
  - Leukoencephalopathy [Recovered/Resolved]
  - Respiratory distress [Recovered/Resolved]
